FAERS Safety Report 6986397-7 (Version None)
Quarter: 2010Q3

REPORT INFORMATION
  Report Type: 
  Country: None (occurrence: None)
  Receive Date: 20100915
  Receipt Date: 20090702
  Transmission Date: 20110219
  Serious: No
  Sender: FDA-Public Use
  Company Number: US-WYE-H10042809

PATIENT
  Sex: Male
  Weight: 68.1 kg

DRUGS (5)
  1. PRISTIQ [Suspect]
     Indication: POST-TRAUMATIC STRESS DISORDER
     Route: 048
     Dates: start: 20090501, end: 20090601
  2. PRISTIQ [Suspect]
     Route: 048
     Dates: start: 20090601, end: 20090628
  3. PLAVIX [Concomitant]
  4. ACETYLSALICYLIC ACID [Concomitant]
  5. NEXIUM [Concomitant]

REACTIONS (9)
  - CONFUSIONAL STATE [None]
  - DIZZINESS [None]
  - DRUG WITHDRAWAL SYNDROME [None]
  - GAIT DISTURBANCE [None]
  - HALLUCINATION [None]
  - HYPERHIDROSIS [None]
  - INSOMNIA [None]
  - TREMOR [None]
  - UNEVALUABLE EVENT [None]
